FAERS Safety Report 14481727 (Version 1)
Quarter: 2018Q1

REPORT INFORMATION
  Report Type: Report from Study
  Country: CA (occurrence: CA)
  Receive Date: 20180202
  Receipt Date: 20180202
  Transmission Date: 20180509
  Serious: Yes (Hospitalization, Other)
  Sender: FDA-Public Use
  Company Number: PHHY2018CA013778

PATIENT
  Sex: Male

DRUGS (2)
  1. JADENU [Suspect]
     Active Substance: DEFERASIROX
     Dosage: 1080 MG, UNK
     Route: 048
     Dates: start: 20180123
  2. JADENU [Suspect]
     Active Substance: DEFERASIROX
     Indication: IRON OVERLOAD
     Dosage: 1080 MG, UNK
     Route: 048
     Dates: start: 20171018, end: 20180109

REACTIONS (3)
  - Immune system disorder [Unknown]
  - Type 1 diabetes mellitus [Unknown]
  - Red blood cell abnormality [Unknown]
